FAERS Safety Report 23962381 (Version 1)
Quarter: 2024Q2

REPORT INFORMATION
  Report Type: Report from Study
  Country: AU (occurrence: AU)
  Receive Date: 20240611
  Receipt Date: 20240611
  Transmission Date: 20240715
  Serious: Yes (Hospitalization)
  Sender: FDA-Public Use
  Company Number: AU-ABBVIE-5791949

PATIENT
  Age: 88 Year
  Sex: Male

DRUGS (1)
  1. LEUPROLIDE ACETATE [Suspect]
     Active Substance: ISOPROPYL ALCOHOL\LEUPROLIDE ACETATE
     Indication: Product used for unknown indication
     Route: 030

REACTIONS (3)
  - Confusional state [Unknown]
  - Disorientation [Unknown]
  - Emotional distress [Unknown]

NARRATIVE: CASE EVENT DATE: 20240606
